FAERS Safety Report 4776566-9 (Version None)
Quarter: 2005Q3

REPORT INFORMATION
  Report Type: 
  Country: None (occurrence: None)
  Receive Date: 20050915
  Receipt Date: 20050905
  Transmission Date: 20060218
  Serious: Yes (Hospitalization)
  Sender: FDA-Public Use
  Company Number: 2005124222

PATIENT
  Age: 42 Year
  Sex: Male

DRUGS (2)
  1. ZARONTIN [Suspect]
     Indication: PETIT MAL EPILEPSY
     Dosage: ORAL
     Route: 048
  2. DEPAKENE [Suspect]
     Indication: PETIT MAL EPILEPSY

REACTIONS (5)
  - AGGRESSION [None]
  - CONFUSIONAL STATE [None]
  - DELIRIUM [None]
  - PARANOIA [None]
  - SEXUAL ACTIVITY INCREASED [None]
